FAERS Safety Report 10638676 (Version 1)
Quarter: 2014Q4

REPORT INFORMATION
  Report Type: Spontaneous
  Country: US (occurrence: None)
  Receive Date: 20141205
  Receipt Date: 20141205
  Transmission Date: 20150529
  Serious: No
  Sender: FDA-Public Use
  Company Number: None

PATIENT
  Age: 63 Year
  Sex: Female

DRUGS (1)
  1. AMPYRA [Suspect]
     Active Substance: DALFAMPRIDINE
     Route: 048
     Dates: start: 201106

REACTIONS (5)
  - Urine leukocyte esterase positive [None]
  - Dysuria [None]
  - Urine abnormality [None]
  - Haemoglobin urine present [None]
  - White blood cells urine positive [None]

NARRATIVE: CASE EVENT DATE: 20141009
